FAERS Safety Report 8175846-7 (Version None)
Quarter: 2012Q1

REPORT INFORMATION
  Report Type: 
  Country: None (occurrence: None)
  Receive Date: 20120227
  Receipt Date: 20120227
  Transmission Date: 20120608
  Serious: Yes (Other)
  Sender: FDA-Public Use
  Company Number: None

PATIENT
  Age: 65 Year
  Sex: Female
  Weight: 79.3795 kg

DRUGS (1)
  1. PANTOPRAZOLE [Suspect]
     Indication: GASTROOESOPHAGEAL REFLUX DISEASE
     Dosage: 40MG 1/DAY
     Dates: start: 20110920, end: 20111015

REACTIONS (3)
  - DYSPEPSIA [None]
  - PRODUCT SUBSTITUTION ISSUE [None]
  - DIARRHOEA [None]
